FAERS Safety Report 12245516 (Version 1)
Quarter: 2016Q2

REPORT INFORMATION
  Report Type: Spontaneous
  Country: US (occurrence: None)
  Receive Date: 20160406
  Receipt Date: 20160406
  Transmission Date: 20160815
  Serious: No
  Sender: FDA-Public Use
  Company Number: None

PATIENT
  Sex: Male

DRUGS (1)
  1. TOUJEO [Suspect]
     Active Substance: INSULIN GLARGINE

REACTIONS (5)
  - Drug ineffective [None]
  - Burning sensation [None]
  - Pain in extremity [None]
  - Blood glucose increased [None]
  - Inappropriate schedule of drug administration [None]
